FAERS Safety Report 12503842 (Version 1)
Quarter: 2016Q2

REPORT INFORMATION
  Report Type: Report from Study
  Country: BR (occurrence: BR)
  Receive Date: 20160628
  Receipt Date: 20160628
  Transmission Date: 20160815
  Serious: Yes (Death)
  Sender: FDA-Public Use
  Company Number: PHHY2016BR088346

PATIENT
  Age: 89 Year
  Sex: Female
  Weight: 68 kg

DRUGS (1)
  1. EXELON PATCH [Suspect]
     Active Substance: RIVASTIGMINE
     Indication: PARKINSON^S DISEASE
     Dosage: PATCH 10 (CM2), HALF PATCH, DAILY
     Route: 062
     Dates: start: 201507

REACTIONS (3)
  - Wrong technique in product usage process [Unknown]
  - Death [Fatal]
  - Product use issue [Unknown]

NARRATIVE: CASE EVENT DATE: 20160519
